FAERS Safety Report 6167677-4 (Version None)
Quarter: 2009Q2

REPORT INFORMATION
  Report Type: 
  Country: None (occurrence: None)
  Receive Date: 20090424
  Receipt Date: 20090417
  Transmission Date: 20091009
  Serious: Yes (Hospitalization)
  Sender: FDA-Public Use
  Company Number: AU-ABBOTT-09P-008-0568626-00

PATIENT
  Sex: Male
  Weight: 73 kg

DRUGS (3)
  1. KALETRA [Suspect]
     Indication: HIV INFECTION
     Dosage: 1 DOSE UNSPECIFIED, DAILY
     Route: 048
     Dates: start: 20080724, end: 20080807
  2. TENOFOVIR DISOPROXIL FUMARATE [Suspect]
     Indication: HIV INFECTION
     Route: 048
     Dates: start: 20080724, end: 20080807
  3. RALTEGRAVIR [Suspect]
     Indication: HIV INFECTION
     Route: 048
     Dates: start: 20080727, end: 20080807

REACTIONS (3)
  - MALAISE [None]
  - PAIN [None]
  - PYREXIA [None]
